FAERS Safety Report 5425336-7 (Version None)
Quarter: 2007Q3

REPORT INFORMATION
  Report Type: 
  Country: None (occurrence: None)
  Receive Date: 20070824
  Receipt Date: 20070817
  Transmission Date: 20080115
  Serious: Yes (Death, Other)
  Sender: FDA-Public Use
  Company Number: RU-SHR-RU-2007-031368

PATIENT
  Age: 55 Year
  Sex: Male
  Weight: 65 kg

DRUGS (2)
  1. FLUDARABINE PHOSPHATE [Suspect]
     Dosage: 42.5 MG, 1X/DAY
     Route: 042
     Dates: start: 20061204, end: 20061206
  2. CYCLOPHOSPHAMIDE [Suspect]
     Dosage: 425 MG, 1X/DAY
     Route: 042
     Dates: start: 20061204, end: 20061206

REACTIONS (2)
  - CEREBRAL HAEMORRHAGE [None]
  - THROMBOCYTOPENIA [None]
